FAERS Safety Report 6018145-1 (Version None)
Quarter: 2008Q4

REPORT INFORMATION
  Report Type: 
  Country: None (occurrence: None)
  Receive Date: 20081223
  Receipt Date: 20081213
  Transmission Date: 20090506
  Serious: Yes (Other)
  Sender: FDA-Public Use
  Company Number: US-PFIZER INC-2008088892

PATIENT
  Sex: Male
  Weight: 84 kg

DRUGS (4)
  1. LIPITOR [Suspect]
     Indication: BLOOD CHOLESTEROL INCREASED
     Dosage: 10 MG, 1X/DAY
     Route: 048
     Dates: start: 19991101, end: 20040116
  2. LIPITOR [Suspect]
     Indication: DYSLIPIDAEMIA
  3. ACETYLSALICYLIC ACID [Concomitant]
  4. FLEXERIL [Concomitant]

REACTIONS (10)
  - ALANINE AMINOTRANSFERASE INCREASED [None]
  - BLOOD CREATINE PHOSPHOKINASE INCREASED [None]
  - DRUG HYPERSENSITIVITY [None]
  - HEPATIC ENZYME INCREASED [None]
  - MUSCLE CONTRACTIONS INVOLUNTARY [None]
  - MUSCLE SPASMS [None]
  - NERVOUS SYSTEM DISORDER [None]
  - PARAESTHESIA [None]
  - POLYMYOSITIS [None]
  - TREMOR [None]
